FAERS Safety Report 13647592 (Version 2)
Quarter: 2017Q3

REPORT INFORMATION
  Report Type: Spontaneous
  Country: US (occurrence: US)
  Receive Date: 20170613
  Receipt Date: 20170713
  Transmission Date: 20171127
  Serious: No
  Sender: FDA-Public Use
  Company Number: US-GLAXOSMITHKLINE-US2017GSK089237

PATIENT
  Sex: Female

DRUGS (1)
  1. FLOVENT [Suspect]
     Active Substance: FLUTICASONE PROPIONATE
     Indication: ASTHMA
     Dosage: 1 PUFF(S), U
     Route: 055

REACTIONS (6)
  - Wrong drug administered [Unknown]
  - Device use error [Unknown]
  - Drug ineffective [Unknown]
  - Product cleaning inadequate [Unknown]
  - Wrong technique in device usage process [Unknown]
  - Product quality issue [Unknown]
